FAERS Safety Report 6466475-1 (Version None)
Quarter: 2009Q4

REPORT INFORMATION
  Report Type: 
  Country: None (occurrence: None)
  Receive Date: 20091202
  Receipt Date: 20091118
  Transmission Date: 20100525
  Serious: Yes (Hospitalization)
  Sender: FDA-Public Use
  Company Number: US-SANOFI-AVENTIS-2009SA002379

PATIENT
  Age: 82 Year
  Sex: Female

DRUGS (3)
  1. MULTAQ [Suspect]
     Route: 048
     Dates: start: 20091021
  2. ALL OTHER THERAPEUTIC PRODUCTS [Concomitant]
  3. CORTICOSTEROIDS [Concomitant]
     Dosage: CHRONIC STEROID USE

REACTIONS (2)
  - CONVULSION [None]
  - SYNCOPE [None]
